FAERS Safety Report 10241775 (Version 1)
Quarter: 2014Q1

REPORT INFORMATION
  Report Type: Spontaneous
  Country: US (occurrence: None)
  Receive Date: 20140306
  Receipt Date: 20140306
  Transmission Date: 20141002
  Serious: Yes (Other)
  Sender: FDA-Public Use
  Company Number: 163-21880-13124422

PATIENT
  Age: 79 Year
  Sex: Female

DRUGS (6)
  1. REVLIMID (LENALIDOMIDE) (CAPSULES) [Suspect]
     Route: 048
     Dates: start: 20131202, end: 2013
  2. VIDAZA (AZACITIDINE) (UNKNOWN) [Concomitant]
  3. ATORVASTATIN CALCIUM (ATORVASTATIN CALCIIUM) (UNKNOWN) [Concomitant]
  4. FOLIC ACID (UNKNOWN) [Concomitant]
  5. LISINOPRIL (UNKNOWN) [Concomitant]
  6. CENTRUM SILVER (UNKNOWN) [Concomitant]

REACTIONS (2)
  - Urticaria [None]
  - Hypersensitivity [None]
